FAERS Safety Report 13159888 (Version 1)
Quarter: 2017Q1

REPORT INFORMATION
  Report Type: Spontaneous
  Country: DE (occurrence: DE)
  Receive Date: 20170127
  Receipt Date: 20170127
  Transmission Date: 20170428
  Serious: Yes (Other)
  Sender: FDA-Public Use
  Company Number: DE-PFIZER INC-2017030766

PATIENT
  Age: 39 Year
  Sex: Female

DRUGS (2)
  1. TREVILOR RETARD [Suspect]
     Active Substance: VENLAFAXINE HYDROCHLORIDE
     Indication: ANXIETY DISORDER
     Dosage: 75 MG, UNK
     Dates: start: 19960101, end: 20170120
  2. TREVILOR RETARD [Suspect]
     Active Substance: VENLAFAXINE HYDROCHLORIDE
     Indication: DEPRESSION

REACTIONS (9)
  - Depersonalisation/derealisation disorder [Unknown]
  - Withdrawal syndrome [Unknown]
  - Obsessive-compulsive disorder [Unknown]
  - Derealisation [Unknown]
  - Dizziness [Unknown]
  - Visual impairment [Unknown]
  - Delusion [Unknown]
  - Suicidal ideation [Unknown]
  - Delusional perception [Unknown]

NARRATIVE: CASE EVENT DATE: 201701
